FAERS Safety Report 6256965-9 (Version None)
Quarter: 2009Q3

REPORT INFORMATION
  Report Type: 
  Country: None (occurrence: None)
  Receive Date: 20090701
  Receipt Date: 20090701
  Transmission Date: 20100115
  Serious: Yes (Hospitalization)
  Sender: FDA-Public Use
  Company Number: None

PATIENT
  Age: 60 Year
  Sex: Male
  Weight: 61 kg

DRUGS (12)
  1. METFORMIN HYDROCHLORIDE [Suspect]
     Indication: TYPE 2 DIABETES MELLITUS
     Dosage: 500MG DAILY PO; CHRONIC
     Route: 048
  2. ASPIRIN [Concomitant]
  3. CARVEDILOL [Concomitant]
  4. COMBIVENT [Concomitant]
  5. FOLIC ACID [Concomitant]
  6. GLIMEPIRIDE [Concomitant]
  7. LANTUS [Concomitant]
  8. LISINOPRIL [Concomitant]
  9. METFORMIN HCL [Concomitant]
  10. M.V.I. [Concomitant]
  11. PLAVIX [Concomitant]
  12. SIMVASTATIN [Concomitant]

REACTIONS (6)
  - ACIDOSIS [None]
  - DEHYDRATION [None]
  - DIARRHOEA [None]
  - HYPERKALAEMIA [None]
  - HYPOTENSION [None]
  - RENAL FAILURE ACUTE [None]
